FAERS Safety Report 5948789-4 (Version None)
Quarter: 2008Q4

REPORT INFORMATION
  Report Type: 
  Country: None (occurrence: None)
  Receive Date: 20081107
  Receipt Date: 20081024
  Transmission Date: 20090506
  Serious: Yes (Hospitalization)
  Sender: FDA-Public Use
  Company Number: 2008US002528

PATIENT
  Age: 27 Year
  Sex: Female
  Weight: 117.9 kg

DRUGS (4)
  1. AMEVIVE [Suspect]
     Indication: PSORIASIS
     Dosage: 15 MG, WEEKLY, INTRAMUSCULAR
     Route: 030
     Dates: start: 20050525
  2. NEXIUM [Concomitant]
  3. CONTRACEPTIVES NOS  MOTRIN [Concomitant]
  4. ALEVE (CAPLET) [Concomitant]

REACTIONS (4)
  - ADRENAL MASS [None]
  - ENTEROCOLITIS [None]
  - ILEUS [None]
  - INFLAMMATION [None]
